FAERS Safety Report 5886733-9 (Version None)
Quarter: 2008Q3

REPORT INFORMATION
  Report Type: 
  Country: None (occurrence: None)
  Receive Date: 20080917
  Receipt Date: 20080916
  Transmission Date: 20090109
  Serious: Yes (Hospitalization)
  Sender: FDA-Public Use
  Company Number: PHHO2000FR08941

PATIENT
  Sex: Male
  Weight: 64 kg

DRUGS (2)
  1. NEORAL [Suspect]
     Indication: HEART TRANSPLANT
     Dosage: 200 MG, QD
     Route: 048
     Dates: start: 20000304, end: 20000710
  2. RAD 666 RAD+ [Suspect]
     Indication: HEART TRANSPLANT
     Dosage: 1.5 MG, BID
     Route: 048
     Dates: start: 20000303

REACTIONS (2)
  - CARDIAC FAILURE [None]
  - CARDIOTOXICITY [None]
